FAERS Safety Report 17681374 (Version 2)
Quarter: 2020Q2

REPORT INFORMATION
  Report Type: Spontaneous
  Country: US (occurrence: US)
  Receive Date: 20200417
  Receipt Date: 20200430
  Transmission Date: 20200714
  Serious: No
  Sender: FDA-Public Use
  Company Number: US-NAPPMUNDI-GBR-2020-0076328

PATIENT
  Age: 42 Year
  Sex: Male

DRUGS (7)
  1. BUPRENORPHINE. [Suspect]
     Active Substance: BUPRENORPHINE
     Dosage: 2 MG, BID (STRENGHT 2 MG)
     Route: 060
     Dates: start: 2010
  2. LITHIUM. [Suspect]
     Active Substance: LITHIUM
     Indication: BORDERLINE PERSONALITY DISORDER
  3. BUPRENORPHINE. [Suspect]
     Active Substance: BUPRENORPHINE
     Indication: SUICIDAL IDEATION
     Dosage: 24 MG, DAILY (12 MG BID, STRENGTH 12 MG)
     Route: 060
  4. ARIPIPRAZOLE. [Suspect]
     Active Substance: ARIPIPRAZOLE
     Indication: BORDERLINE PERSONALITY DISORDER
  5. BUPRENORPHINE. [Suspect]
     Active Substance: BUPRENORPHINE
     Indication: PAIN
     Dosage: 8 MG, DAILY
     Route: 060
  6. LITHIUM. [Suspect]
     Active Substance: LITHIUM
     Indication: BIPOLAR DISORDER
     Dosage: UNK
     Route: 065
     Dates: start: 2010
  7. ARIPIPRAZOLE. [Suspect]
     Active Substance: ARIPIPRAZOLE
     Indication: BIPOLAR DISORDER
     Dosage: UNK
     Route: 065
     Dates: start: 2010

REACTIONS (1)
  - Off label use [Not Recovered/Not Resolved]
